FAERS Safety Report 6313132-8 (Version None)
Quarter: 2009Q3

REPORT INFORMATION
  Report Type: 
  Country: None (occurrence: None)
  Receive Date: 20090818
  Receipt Date: 20090806
  Transmission Date: 20100115
  Serious: Yes (Hospitalization)
  Sender: FDA-Public Use
  Company Number: DE-PFIZER INC-2009241219

PATIENT
  Age: 50 Year

DRUGS (6)
  1. SUNITINIB MALATE [Suspect]
     Indication: BREAST CANCER FEMALE
     Dosage: 50 MG, 1X/DAY
     Route: 048
     Dates: start: 20080717
  2. DOCETAXEL [Suspect]
     Indication: BREAST CANCER
     Dosage: 128 MG, 1X/DAY
     Dates: start: 20080716, end: 20081126
  3. JODID 100 [Concomitant]
     Dosage: UNK
     Route: 048
  4. CIPRALEX [Concomitant]
     Dosage: UNK
     Route: 048
  5. LOPERAMIDE [Concomitant]
     Dosage: UNK
     Route: 048
  6. AMITRIPTYLINE [Concomitant]
     Dosage: UNK
     Route: 048

REACTIONS (2)
  - CATHETER RELATED INFECTION [None]
  - PNEUMONIA [None]
